FAERS Safety Report 15585513 (Version 2)
Quarter: 2020Q3

REPORT INFORMATION
  Report Type: Spontaneous
  Country: US (occurrence: US)
  Receive Date: 20181104
  Receipt Date: 20200915
  Transmission Date: 20201102
  Serious: Yes (Other)
  Sender: FDA-Public Use
  Company Number: US-BIOGEN-2018BI00653126

PATIENT
  Age: 62 Year
  Sex: Male

DRUGS (1)
  1. TYSABRI [Suspect]
     Active Substance: NATALIZUMAB
     Indication: MULTIPLE SCLEROSIS
     Route: 050

REACTIONS (7)
  - Non-alcoholic steatohepatitis [Unknown]
  - Weight increased [Unknown]
  - Vertigo [Unknown]
  - Muscle spasms [Unknown]
  - Insomnia [Unknown]
  - Anger [Unknown]
  - Type 2 diabetes mellitus [Unknown]
